FAERS Safety Report 18311894 (Version 1)
Quarter: 2020Q3

REPORT INFORMATION
  Report Type: Spontaneous
  Country: CA (occurrence: CA)
  Receive Date: 20200925
  Receipt Date: 20200925
  Transmission Date: 20201103
  Serious: Yes (Other)
  Sender: FDA-Public Use
  Company Number: CA-ACCORD-202135

PATIENT
  Age: 68 Year
  Sex: Male

DRUGS (7)
  1. DESOXIMETASONE. [Suspect]
     Active Substance: DESOXIMETASONE
     Indication: PSORIASIS
     Dosage: NOT SPECIFIED
     Route: 065
  2. MYCOPHENOLIC ACID. [Suspect]
     Active Substance: MYCOPHENOLIC ACID
     Indication: PSORIASIS
     Route: 065
  3. CICLOSPORIN [Suspect]
     Active Substance: CYCLOSPORINE
     Indication: PRODUCT USED FOR UNKNOWN INDICATION
     Dosage: NOT SPECIFIED
     Route: 065
  4. COSENTYX [Suspect]
     Active Substance: SECUKINUMAB
     Indication: PSORIASIS
     Route: 058
  5. METHOTREXATE. [Suspect]
     Active Substance: METHOTREXATE
     Indication: PRODUCT USED FOR UNKNOWN INDICATION
     Dosage: NOT SPECIFIED
     Route: 065
  6. ACITRETIN. [Concomitant]
     Active Substance: ACITRETIN
     Dosage: NOT SPECIFIED
     Route: 065
  7. OTEZLA [Concomitant]
     Active Substance: APREMILAST
     Route: 065

REACTIONS (5)
  - Mobility decreased [Unknown]
  - Off label use [Unknown]
  - Psoriasis [Unknown]
  - Myasthenia gravis [Unknown]
  - Drug ineffective [Unknown]
